FAERS Safety Report 8438217-1 (Version None)
Quarter: 2012Q2

REPORT INFORMATION
  Report Type: 
  Country: None (occurrence: None)
  Receive Date: 20120614
  Receipt Date: 20120612
  Transmission Date: 20120825
  Serious: Yes (Hospitalization)
  Sender: FDA-Public Use
  Company Number: US-PFIZER INC-2011123699

PATIENT
  Sex: Female
  Weight: 65.306 kg

DRUGS (5)
  1. LYRICA [Suspect]
     Indication: NEUROPATHY PERIPHERAL
     Dosage: 100 MG, AS NEEDED
     Route: 048
     Dates: end: 20120220
  2. PLAVIX [Concomitant]
     Dosage: UNK
  3. BENICAR [Concomitant]
     Dosage: UNK
  4. VERAPAMIL [Concomitant]
     Dosage: UNK
  5. TRICOR [Concomitant]
     Dosage: UNK

REACTIONS (2)
  - URINARY TRACT INFECTION [None]
  - PAIN [None]
